FAERS Safety Report 6945230-X (Version None)
Quarter: 2010Q3

REPORT INFORMATION
  Report Type: 
  Country: None (occurrence: None)
  Receive Date: 20100827
  Receipt Date: 20100615
  Transmission Date: 20110219
  Serious: No
  Sender: FDA-Public Use
  Company Number: US-KINGPHARMUSA00001-K201000738

PATIENT
  Age: 77 Year
  Sex: Male

DRUGS (4)
  1. FLECTOR [Suspect]
     Indication: SCOLIOSIS
     Dosage: 1 PATCH, Q12H
     Route: 061
     Dates: start: 20100301
  2. FLECTOR [Suspect]
     Indication: ARTHRITIS
  3. MORPHINE [Concomitant]
     Indication: PAIN
     Dosage: UNK
  4. OXYCODONE HCL [Concomitant]
     Indication: PAIN
     Dosage: UNK

REACTIONS (5)
  - APPLICATION SITE ERYTHEMA [None]
  - APPLICATION SITE RASH [None]
  - APPLICATION SITE SWELLING [None]
  - CONSTIPATION [None]
  - SOMNOLENCE [None]
